FAERS Safety Report 13791259 (Version 1)
Quarter: 2017Q3

REPORT INFORMATION
  Report Type: Spontaneous
  Country: US (occurrence: US)
  Receive Date: 20170725
  Receipt Date: 20170725
  Transmission Date: 20171127
  Serious: No
  Sender: FDA-Public Use
  Company Number: US-AMNEAL PHARMACEUTICALS-2016AMN00423

PATIENT
  Age: 53 Year
  Sex: Female
  Weight: 59.86 kg

DRUGS (7)
  1. MAPAP [Concomitant]
     Active Substance: ACETAMINOPHEN
     Indication: PAIN
  2. PREDNISONE. [Concomitant]
     Active Substance: PREDNISONE
  3. LISINOPRIL. [Concomitant]
     Active Substance: LISINOPRIL
  4. ACETAMINOPHEN AND CODEINE [Suspect]
     Active Substance: ACETAMINOPHEN\CODEINE PHOSPHATE
     Indication: PAIN
     Dosage: UNK
     Dates: start: 20160606, end: 20160607
  5. AMLODIPINE [Concomitant]
     Active Substance: AMLODIPINE BESYLATE
  6. BLOOD PRESSURE MEDICATION [Concomitant]
     Active Substance: UNSPECIFIED INGREDIENT
     Indication: BLOOD PRESSURE MANAGEMENT
  7. APAP AND CODEINE PHOSPHATE 300MG/30MG [Concomitant]

REACTIONS (3)
  - Chest discomfort [Recovered/Resolved]
  - Lacrimation increased [Recovered/Resolved]
  - Pain [Not Recovered/Not Resolved]

NARRATIVE: CASE EVENT DATE: 201606
